FAERS Safety Report 7563251-3 (Version None)
Quarter: 2011Q2

REPORT INFORMATION
  Report Type: 
  Country: None (occurrence: None)
  Receive Date: 20110615
  Receipt Date: 20110524
  Transmission Date: 20111010
  Serious: Yes (Other)
  Sender: FDA-Public Use
  Company Number: 2011SP023804

PATIENT
  Age: 45 Year
  Sex: Female

DRUGS (1)
  1. DIPROSPAN (BETAMETHASONE SODIUM PHOSPHATE/DIPROPIONATE) (BETAMETHASONE [Suspect]
     Indication: SPORTS INJURY
     Dosage: 0.6 ML; ONCE;
     Dates: start: 20010401, end: 20010401

REACTIONS (2)
  - RETINOPATHY [None]
  - BLINDNESS UNILATERAL [None]
